FAERS Safety Report 12603500 (Version 2)
Quarter: 2016Q3

REPORT INFORMATION
  Report Type: Spontaneous
  Country: US (occurrence: US)
  Receive Date: 20160728
  Receipt Date: 20160829
  Transmission Date: 20161109
  Serious: No
  Sender: FDA-Public Use
  Company Number: US-LEO PHARMA-243248

PATIENT
  Sex: Female

DRUGS (1)
  1. PICATO [Suspect]
     Active Substance: INGENOL MEBUTATE
     Indication: ACTINIC KERATOSIS
     Route: 061

REACTIONS (6)
  - Skin burning sensation [Not Recovered/Not Resolved]
  - Drug administered at inappropriate site [Unknown]
  - Application site scab [Not Recovered/Not Resolved]
  - Application site burn [Recovered/Resolved]
  - Application site discharge [Not Recovered/Not Resolved]
  - Application site pruritus [Recovering/Resolving]
